FAERS Safety Report 5721677-4 (Version None)
Quarter: 2008Q2

REPORT INFORMATION
  Report Type: 
  Country: None (occurrence: None)
  Receive Date: 20080429
  Receipt Date: 20080422
  Transmission Date: 20081010
  Serious: No
  Sender: FDA-Public Use
  Company Number: US-BAXTER-2008BH004020

PATIENT
  Age: 82 Year
  Sex: Female
  Weight: 56 kg

DRUGS (10)
  1. HEPARIN SODIUM 5,000 UNITS IN DEXTROSE 5% [Suspect]
     Indication: PULMONARY EMBOLISM
     Dosage: DOSE UNIT:UNKNOWN
     Route: 042
     Dates: start: 20080330, end: 20080407
  2. HEPARIN SODIUM 5,000 UNITS IN DEXTROSE 5% [Suspect]
     Dosage: DOSE UNIT:UNKNOWN
     Route: 042
     Dates: start: 20080407, end: 20080409
  3. ADVAIR HFA [Concomitant]
     Indication: CHRONIC OBSTRUCTIVE PULMONARY DISEASE
     Dosage: DOSE UNIT:UNKNOWN
     Route: 065
  4. ALBUTEROL [Concomitant]
     Indication: CHRONIC OBSTRUCTIVE PULMONARY DISEASE
     Dosage: DOSE UNIT:UNKNOWN
     Route: 065
  5. SPIRIVA [Concomitant]
     Indication: CHRONIC OBSTRUCTIVE PULMONARY DISEASE
     Dosage: DOSE UNIT:UNKNOWN
     Route: 065
  6. LASIX [Concomitant]
     Indication: CARDIAC FAILURE CONGESTIVE
     Dosage: DOSE UNIT:UNKNOWN
     Route: 065
  7. PROLASIX [Concomitant]
     Indication: CARDIAC FAILURE CONGESTIVE
     Dosage: DOSE UNIT:UNKNOWN
     Route: 065
  8. TRIPITAL [Concomitant]
     Indication: TRIGEMINAL NEURALGIA
     Route: 048
  9. ZOSYN [Concomitant]
     Indication: PROPHYLAXIS
     Dosage: DOSE UNIT:UNKNOWN
     Route: 065
     Dates: start: 20080401, end: 20080401
  10. OXYGEN [Concomitant]
     Indication: CHRONIC OBSTRUCTIVE PULMONARY DISEASE
     Route: 055

REACTIONS (4)
  - ABDOMINAL PAIN [None]
  - DYSPNOEA [None]
  - FEELING HOT [None]
  - VOMITING [None]
